FAERS Safety Report 6632250-8 (Version None)
Quarter: 2010Q1

REPORT INFORMATION
  Report Type: 
  Country: None (occurrence: None)
  Receive Date: 20100312
  Receipt Date: 20100304
  Transmission Date: 20100710
  Serious: Yes (Disabling)
  Sender: FDA-Public Use
  Company Number: GB-B.I. PHARMACEUTICALS,INC./RIDGEFIELD-2010-UK-00213UK

PATIENT
  Age: 62 Year
  Sex: Female

DRUGS (1)
  1. MIRAPEX [Suspect]
     Indication: PARKINSON'S DISEASE
     Dosage: 0.5MG 3 TIMES DAILY
     Route: 048
     Dates: start: 20050101, end: 20090101

REACTIONS (1)
  - VISUAL FIELD DEFECT [None]
